FAERS Safety Report 5757738-3 (Version None)
Quarter: 2008Q2

REPORT INFORMATION
  Report Type: 
  Country: None (occurrence: None)
  Receive Date: 20080529
  Receipt Date: 20080515
  Transmission Date: 20081010
  Serious: Yes (Other)
  Sender: FDA-Public Use
  Company Number: 8032759

PATIENT
  Age: 60 Year
  Sex: Female

DRUGS (8)
  1. XOZAL [Suspect]
     Indication: COUGH
     Dosage: 5 MG 1/D PO
     Route: 048
     Dates: start: 20080401, end: 20080401
  2. XOZAL [Suspect]
     Indication: PHARYNGOLARYNGEAL DISCOMFORT
     Dosage: 5 MG 1/D PO
     Route: 048
     Dates: start: 20080401, end: 20080401
  3. SINGULAIR [Suspect]
     Indication: COUGH
     Dosage: 5 MG 1/D PO
     Route: 048
     Dates: start: 20080401, end: 20080401
  4. SINGULAIR [Suspect]
     Indication: PHARYNGOLARYNGEAL DISCOMFORT
     Dosage: 5 MG 1/D PO
     Route: 048
     Dates: start: 20080401, end: 20080401
  5. PREZOLON [Suspect]
     Indication: COUGH
     Dosage: 5 MG /D PO
     Route: 048
     Dates: start: 20080401, end: 20080401
  6. PREZOLON [Suspect]
     Indication: PHARYNGOLARYNGEAL DISCOMFORT
     Dosage: 5 MG /D PO
     Route: 048
     Dates: start: 20080401, end: 20080401
  7. PREZOLON [Suspect]
     Indication: COUGH
     Dosage: 3 MG /D PO
     Route: 048
     Dates: start: 20080401, end: 20080401
  8. PREZOLON [Suspect]
     Indication: DISCOMFORT
     Dosage: 3 MG /D PO
     Route: 048
     Dates: start: 20080401, end: 20080401

REACTIONS (4)
  - ANGIOEDEMA [None]
  - DYSPHONIA [None]
  - DYSPNOEA [None]
  - PYREXIA [None]
